FAERS Safety Report 9360974 (Version 1)
Quarter: 2013Q2

REPORT INFORMATION
  Report Type: Spontaneous
  Country: VE (occurrence: VE)
  Receive Date: 20130621
  Receipt Date: 20130621
  Transmission Date: 20140414
  Serious: Yes (Other)
  Sender: FDA-Public Use
  Company Number: VE-PFIZER INC-2013185859

PATIENT
  Age: 67 Year
  Sex: Female

DRUGS (2)
  1. CADUET [Suspect]
     Dosage: [AMLODIPINE BESILATE 5 MG]/ [ATORVASTATIN CALCIUM 20 MG] 1 DF ONCE DAILY
  2. LYRICA [Concomitant]
     Dosage: 75 MG, UNK

REACTIONS (1)
  - Breast disorder [Unknown]
